APPROVED DRUG PRODUCT: LOVENOX (PRESERVATIVE FREE)
Active Ingredient: ENOXAPARIN SODIUM
Strength: 100MG/ML (100MG/ML)
Dosage Form/Route: INJECTABLE;SUBCUTANEOUS
Application: N020164 | Product #005 | TE Code: AP
Applicant: SANOFI AVENTIS US LLC
Approved: Mar 27, 1998 | RLD: Yes | RS: Yes | Type: RX